FAERS Safety Report 11529182 (Version 2)
Quarter: 2015Q4

REPORT INFORMATION
  Report Type: Spontaneous
  Country: US (occurrence: US)
  Receive Date: 20150921
  Receipt Date: 20151208
  Transmission Date: 20160304
  Serious: Yes (Hospitalization, Other)
  Sender: FDA-Public Use
  Company Number: US-ELI_LILLY_AND_COMPANY-US201509003909

PATIENT
  Age: 63 Year
  Sex: Male
  Weight: 92.97 kg

DRUGS (2)
  1. ANDROGEL [Suspect]
     Active Substance: TESTOSTERONE
     Indication: BLOOD TESTOSTERONE DECREASED
     Dosage: UNK, UNKNOWN
     Route: 065
  2. AXIRON [Suspect]
     Active Substance: TESTOSTERONE
     Indication: BLOOD TESTOSTERONE DECREASED
     Dosage: UNK, UNKNOWN
     Route: 065

REACTIONS (10)
  - Muscle spasticity [Unknown]
  - Dysarthria [Recovered/Resolved]
  - Coordination abnormal [Recovered/Resolved with Sequelae]
  - Gait deviation [Recovered/Resolved with Sequelae]
  - Hemiparesis [Recovered/Resolved with Sequelae]
  - Cerebrovascular accident [Recovered/Resolved with Sequelae]
  - Hyperlipidaemia [Unknown]
  - Balance disorder [Recovered/Resolved with Sequelae]
  - Adjustment disorder with depressed mood [Unknown]
  - Spasmodic dysphonia [Unknown]

NARRATIVE: CASE EVENT DATE: 20130909
